FAERS Safety Report 9197617 (Version 1)
Quarter: 2013Q1

REPORT INFORMATION
  Report Type: Spontaneous
  Country: US (occurrence: US)
  Receive Date: 20130328
  Receipt Date: 20130328
  Transmission Date: 20140127
  Serious: Yes (Hospitalization, Other)
  Sender: FDA-Public Use
  Company Number: US-BAYER-2013-036844

PATIENT
  Age: 28 Year
  Sex: Female

DRUGS (40)
  1. YASMIN [Suspect]
  2. HUMULIN R [Concomitant]
     Dosage: 18UNITS IN AM
  3. LISINOPRIL [Concomitant]
  4. LOPRESSOR [Concomitant]
     Dosage: 100 MG, BID
  5. HYDROCHLOROTHIAZIDE [Concomitant]
  6. LANTUS [Concomitant]
  7. REGLAN [Concomitant]
     Dosage: 10 MG, 1 TABLET BEFORE MEAL QID
  8. PRILOSEC [Concomitant]
  9. FLEXERIL [Concomitant]
  10. FERROUS SULFATE [Concomitant]
     Dosage: 325 MG, BID
  11. CLARITIN [Concomitant]
  12. XANAX [Concomitant]
     Dosage: 0.25 MG, HS
     Route: 048
  13. CEFOTETAN [Concomitant]
     Dosage: 1 G, EVERY 12 HOURS FOR 42 DAYS
     Route: 048
  14. CATAPRES [Concomitant]
     Dosage: 0.2 MG, EACH WEEK
     Route: 048
  15. VASOTEC [Concomitant]
     Dosage: 20 MG, BID
     Route: 048
  16. NOVOLIN [INSULIN] [Concomitant]
     Dosage: 70/30, 35 UNITS IN AM AND 25 UNITS IN PM
  17. PROTONIX [Concomitant]
     Dosage: 40 MG, BID
     Route: 048
  18. LORTAB [Concomitant]
     Indication: PAIN
     Dosage: 5/500, 1-2 TABLETS EVERY 4-6 HOURS AS NEEDED
     Route: 048
  19. ZYPREXA [Concomitant]
     Dosage: 15 MG, 1 AT HS
     Route: 048
  20. NIFEDIPINE [Concomitant]
  21. ZELNORM [Concomitant]
     Dosage: 2 MG, BID
  22. SINGULAIR [Concomitant]
     Dosage: 10 MG, HS
     Route: 048
  23. ULTRAM [Concomitant]
     Dosage: 50 MG, EVERY 4-6 HOURS PRN
     Route: 048
  24. INHALER NOS [Concomitant]
  25. PAXIL [Concomitant]
     Dosage: 30 MG A DAY
     Route: 048
  26. TRAMADOL [Concomitant]
     Dosage: 50 MG 1 EVERY 6 HOURS-12 HOURS
  27. TYLENOL [PARACETAMOL] [Concomitant]
     Dosage: 325 MG, UNK
     Route: 048
  28. HYDROCODONE W/APAP [Concomitant]
     Dosage: 5MG/500MG 1-2 EVERY 6 HOURS AS NEEDED
     Route: 048
  29. DIPHENHYDRAMINE [Concomitant]
     Dosage: 50 MG, 1 EVERY 4-6 HOURS PRN
  30. ENALAPRIL [Concomitant]
     Dosage: 20 MG, 1 A DAY
     Route: 048
  31. METOCLOPRAMIDE [Concomitant]
     Dosage: 10 MG, 1, 3 TIMES A DAY
     Route: 048
  32. SENNA [Concomitant]
     Dosage: 1-2 TIMES A DAY
     Route: 048
  33. ACETAMINOPHEN W/CODEINE [Concomitant]
     Indication: PAIN
     Dosage: 1 EVERY 4 HOURS AS NEEDED
     Route: 048
  34. PROMETHAZINE [Concomitant]
     Indication: VOMITING
     Dosage: 25 MG, PRN 1 EVERY 6-8 HOURS
     Route: 048
  35. PROMETHAZINE [Concomitant]
     Indication: NAUSEA
  36. PROMETHEGAN [Concomitant]
     Indication: NAUSEA
     Dosage: 25 MG, 1 EVERY 8 HOURS PRN
  37. PROMETHEGAN [Concomitant]
     Indication: VOMITING
  38. LEVAQUIN [Concomitant]
     Dosage: 750 MG, A DAY
     Route: 048
  39. VANCOMYCIN [Concomitant]
  40. LIDOCAINE [Concomitant]

REACTIONS (3)
  - Deep vein thrombosis [None]
  - Thrombophlebitis [None]
  - Cholecystitis [None]
